FAERS Safety Report 6659716-9 (Version None)
Quarter: 2010Q1

REPORT INFORMATION
  Report Type: 
  Country: None (occurrence: None)
  Receive Date: 20100325
  Receipt Date: 20100310
  Transmission Date: 20100710
  Serious: Yes (Hospitalization)
  Sender: FDA-Public Use
  Company Number: 2009BI028377

PATIENT
  Age: 52 Year
  Sex: Male

DRUGS (10)
  1. ZEVALIN [Suspect]
     Indication: FOLLICLE CENTRE LYMPHOMA, FOLLICULAR GRADE I, II, III
     Dosage: 796 MBQ; 1X; IV
     Route: 042
     Dates: start: 20090407, end: 20090414
  2. RITUXIMAB [Concomitant]
  3. LOXONIN [Concomitant]
  4. POLARAMINE [Concomitant]
  5. CRAVIT [Concomitant]
  6. AM [Concomitant]
  7. LECICARBON [Concomitant]
  8. . [Concomitant]
  9. FLUDARA [Concomitant]
  10. FLUDEOXYGLUCOSE [Concomitant]

REACTIONS (2)
  - BONE MARROW FAILURE [None]
  - NAUSEA [None]
